FAERS Safety Report 9562513 (Version 6)
Quarter: 2014Q1

REPORT INFORMATION
  Report Type: Spontaneous
  Country: IE (occurrence: IE)
  Receive Date: 20130927
  Receipt Date: 20140206
  Transmission Date: 20141002
  Serious: Yes (Death, Hospitalization, Other)
  Sender: FDA-Public Use
  Company Number: PHFR2013IE005449

PATIENT
  Age: 61 Year
  Sex: Female

DRUGS (3)
  1. CLOZARIL [Suspect]
     Indication: SCHIZOPHRENIA
     Dosage: UNK
     Route: 048
     Dates: start: 20010701
  2. CLOZARIL [Suspect]
     Dosage: UNK
     Route: 048
     Dates: start: 20110602
  3. CLOZARIL [Suspect]
     Dosage: UNK
     Route: 048

REACTIONS (6)
  - Death [Fatal]
  - Small cell lung cancer metastatic [Unknown]
  - Metastases to liver [Unknown]
  - Confusional state [Unknown]
  - White blood cell count increased [Not Recovered/Not Resolved]
  - Neutrophil count increased [Unknown]
